FAERS Safety Report 6503745-2 (Version None)
Quarter: 2009Q4

REPORT INFORMATION
  Report Type: 
  Country: None (occurrence: None)
  Receive Date: 20091217
  Receipt Date: 20091214
  Transmission Date: 20100525
  Serious: Yes (Life-Threatening, Hospitalization)
  Sender: FDA-Public Use
  Company Number: FR-BRISTOL-MYERS SQUIBB COMPANY-14576235

PATIENT
  Age: 33 Year
  Sex: Male

DRUGS (7)
  1. BLEOMYCIN SULFATE [Suspect]
     Indication: TESTIS CANCER
     Dosage: INITIAL INF:17NOV08.DAY 1, DAY 5 AND DAY 15
     Route: 042
     Dates: start: 20081229, end: 20081229
  2. CISPLATIN [Suspect]
     Indication: TESTIS CANCER
     Dosage: INITIAL INF:17NOV08.FROM DAY 1 TO DAY 5
     Route: 042
     Dates: start: 20081229, end: 20081229
  3. ETOPOSIDE [Suspect]
     Indication: TESTIS CANCER
     Dosage: INITIAL INF:17NOV08.FROM DAY 1 TO DAY 5
     Route: 042
     Dates: start: 20081229, end: 20081229
  4. NEUPOGEN [Concomitant]
     Route: 042
     Dates: start: 20080101
  5. HYDROCORTISONE [Concomitant]
     Dates: start: 20081219
  6. INIPOMP [Concomitant]
     Dates: start: 20081219
  7. VOGALENE [Concomitant]
     Dates: start: 20081219

REACTIONS (7)
  - FALL [None]
  - HEPATIC FAILURE [None]
  - HEPATITIS B [None]
  - LEUKOPENIA [None]
  - MALAISE [None]
  - MUCOSAL INFLAMMATION [None]
  - NEUTROPENIA [None]
